FAERS Safety Report 4322131-7 (Version None)
Quarter: 2004Q1

REPORT INFORMATION
  Report Type: 
  Country: None (occurrence: None)
  Receive Date: 20040323
  Receipt Date: 20040130
  Transmission Date: 20041129
  Serious: Yes (Death)
  Sender: FDA-Public Use
  Company Number: PHHO2004CA01755

PATIENT
  Age: 49 Year
  Sex: Male

DRUGS (3)
  1. CLOZARIL [Suspect]
     Indication: SCHIZOPHRENIA
     Dates: start: 19920804
  2. LARGACTIL [Concomitant]
     Dosage: 150 MG
  3. ATIVAN [Concomitant]
     Dosage: 1 MG, TID AND 2 MG BEDTIME

REACTIONS (1)
  - INFARCTION [None]
